FAERS Safety Report 11253258 (Version 1)
Quarter: 2015Q3

REPORT INFORMATION
  Report Type: Spontaneous
  Country: US (occurrence: US)
  Receive Date: 20150709
  Receipt Date: 20150709
  Transmission Date: 20151125
  Serious: No
  Sender: FDA-Public Use
  Company Number: US-TEVA-518418USA

PATIENT
  Sex: Female

DRUGS (1)
  1. VENLAFAXINE [Suspect]
     Active Substance: VENLAFAXINE HYDROCHLORIDE
     Dates: start: 20141003

REACTIONS (5)
  - Anxiety [Unknown]
  - Panic disorder [Unknown]
  - Insomnia [Unknown]
  - Fear [Unknown]
  - Sinusitis [Unknown]
